FAERS Safety Report 4392357-5 (Version None)
Quarter: 2004Q3

REPORT INFORMATION
  Report Type: 
  Country: None (occurrence: None)
  Receive Date: 20040702
  Receipt Date: 20040219
  Transmission Date: 20050211
  Serious: Yes (Other)
  Sender: FDA-Public Use
  Company Number: 2004UW02953

PATIENT
  Age: 74 Year
  Sex: Female

DRUGS (8)
  1. CRESTOR [Suspect]
     Indication: BLOOD CHOLESTEROL INCREASED
     Dosage: 10 MG QD PO
     Route: 048
  2. SYNTHROID [Concomitant]
  3. NEXIUM [Concomitant]
  4. SECTRAL [Concomitant]
  5. NORVASC [Concomitant]
  6. ECOTRIN [Concomitant]
  7. VITAMIN [Concomitant]
  8. FOSAMAX [Concomitant]

REACTIONS (2)
  - ERUCTATION [None]
  - FLATULENCE [None]
